FAERS Safety Report 6996843-0 (Version None)
Quarter: 2010Q3

REPORT INFORMATION
  Report Type: 
  Country: None (occurrence: None)
  Receive Date: 20100918
  Receipt Date: 20090710
  Transmission Date: 20110219
  Serious: No
  Sender: FDA-Public Use
  Company Number: US-WYE-H10112309

PATIENT
  Age: 49 Year
  Sex: Female
  Weight: 74.46 kg

DRUGS (4)
  1. PREMPRO [Suspect]
     Indication: HOT FLUSH
     Dosage: 0.3MG/1.5MG DAILY
     Route: 048
     Dates: start: 20090101
  2. PREMPRO [Suspect]
     Indication: MENSTRUATION IRREGULAR
  3. HCT [Concomitant]
     Indication: BLOOD PRESSURE
     Route: 048
  4. PAXIL [Concomitant]
     Indication: DEPRESSION
     Route: 048

REACTIONS (1)
  - BREAST CALCIFICATIONS [None]
